FAERS Safety Report 4664132-5 (Version None)
Quarter: 2005Q2

REPORT INFORMATION
  Report Type: 
  Country: None (occurrence: None)
  Receive Date: 20050516
  Receipt Date: 20050516
  Transmission Date: 20051028
  Serious: Yes (Other)
  Sender: FDA-Public Use
  Company Number: None

PATIENT
  Age: 29 Year
  Sex: Male
  Weight: 90.5 kg

DRUGS (6)
  1. OXCARBAZEPINE   300MG [Suspect]
     Indication: MOOD ALTERED
     Dosage: 300MG  BID   ORAL
     Route: 048
     Dates: start: 20041123, end: 20041207
  2. OXCARBAZEPINE   600MG [Suspect]
     Indication: MOOD ALTERED
     Dosage: 600MG   BID   ORAL
     Route: 048
     Dates: start: 20041207, end: 20041215
  3. DIVALPROEX SODIUM [Concomitant]
  4. DIPHENHYDRAMINE HCL [Concomitant]
  5. CHLORPROMAZINE [Concomitant]
  6. CLONAZEPAM [Concomitant]

REACTIONS (4)
  - GAIT DISTURBANCE [None]
  - HAEMATURIA [None]
  - LETHARGY [None]
  - MICROALBUMINURIA [None]
